FAERS Safety Report 25963746 (Version 4)
Quarter: 2025Q4

REPORT INFORMATION
  Report Type: Report from Study
  Country: US (occurrence: US)
  Receive Date: 20251027
  Receipt Date: 20251228
  Transmission Date: 20260117
  Serious: Yes (Other)
  Sender: NOVARTIS
  Company Number: US-002147023-NVSC2025US124999

PATIENT
  Age: 82 Year
  Sex: Female

DRUGS (2)
  1. LEQVIO [Suspect]
     Active Substance: INCLISIRAN SODIUM
     Indication: Product used for unknown indication
     Dosage: UNK
     Route: 058
  2. LEQVIO [Suspect]
     Active Substance: INCLISIRAN SODIUM
     Dosage: SECOND TREATMENT
     Route: 058
     Dates: start: 20250716

REACTIONS (8)
  - Neoplasm malignant [Unknown]
  - Hypertension [Recovering/Resolving]
  - Laboratory test abnormal [Unknown]
  - Blood cholesterol abnormal [Unknown]
  - Arterial disorder [Unknown]
  - Injection site pain [Unknown]
  - Inappropriate schedule of product administration [Unknown]
  - Therapeutic product effect incomplete [Unknown]

NARRATIVE: CASE EVENT DATE: 20250601
